FAERS Safety Report 10513731 (Version 1)
Quarter: 2014Q4

REPORT INFORMATION
  Report Type: Spontaneous
  Country: US (occurrence: US)
  Receive Date: 20141013
  Receipt Date: 20141013
  Transmission Date: 20150528
  Serious: Yes (Hospitalization, Disabling)
  Sender: FDA-Public Use
  Company Number: US-ABBVIE-14P-163-1293667-00

PATIENT
  Age: 65 Year
  Sex: Male

DRUGS (1)
  1. ANDROGEL [Suspect]
     Active Substance: TESTOSTERONE
     Indication: BLOOD TESTOSTERONE DECREASED
     Route: 065
     Dates: start: 20130419, end: 201311

REACTIONS (2)
  - Lacunar infarction [Unknown]
  - Pain [Unknown]

NARRATIVE: CASE EVENT DATE: 20131109
